FAERS Safety Report 8295032 (Version 3)
Quarter: 2012Q4

REPORT INFORMATION
  Report Type: Report from Study
  Country: IL (occurrence: IL)
  Receive Date: 20111216
  Receipt Date: 20120925
  Transmission Date: 20130627
  Serious: Yes (Hospitalization, Other)
  Sender: FDA-Public Use
  Company Number: IL-PFIZER INC-2011194751

PATIENT
  Age: 56 Year
  Sex: Male

DRUGS (9)
  1. LYRICA [Suspect]
  2. METFORMIN HCL [Suspect]
     Indication: TYPE 2 DIABETES MELLITUS
     Dosage: 2550 mg, UNK
  3. BLINDED THERAPY [Suspect]
     Indication: TYPE 2 DIABETES MELLITUS
     Dosage: UNK
     Dates: start: 20101208
  4. HUMALOG [Suspect]
     Indication: TYPE 2 DIABETES MELLITUS
     Dosage: 60 IU, UNK
  5. LANTUS [Suspect]
     Indication: TYPE 2 DIABETES MELLITUS
     Dosage: 40 IU, UNK
  6. LANTUS [Suspect]
     Dosage: 16 IU, UNK
     Dates: start: 20110611
  7. LOPRESSOR [Suspect]
     Dosage: UNK
     Dates: end: 20110609
  8. AMLODIPINE [Suspect]
     Dosage: UNK
     Dates: end: 20110611
  9. TEGRETOL [Suspect]

REACTIONS (3)
  - Syncope [Recovered/Resolved]
  - Angina unstable [Recovered/Resolved]
  - Chest pain [Recovered/Resolved]
